FAERS Safety Report 5049648-4 (Version None)
Quarter: 2006Q3

REPORT INFORMATION
  Report Type: 
  Country: None (occurrence: None)
  Receive Date: 20060707
  Receipt Date: 20060628
  Transmission Date: 20061208
  Serious: Yes (Other)
  Sender: FDA-Public Use
  Company Number: 2006-06-2199

PATIENT
  Age: 38 Year
  Sex: Male

DRUGS (8)
  1. PEG-INTRON [Suspect]
     Indication: HEPATITIS C
     Dosage: SUBCUTANEOUS
     Route: 058
     Dates: start: 20060306
  2. RIBAVIRIN [Suspect]
     Indication: HEPATITIS C
     Dosage: ORAL
     Route: 048
     Dates: start: 20060306
  3. METHADONE HYDROCHLORIDE [Concomitant]
  4. REGLAN [Concomitant]
  5. SEROQUEL [Concomitant]
  6. VALIUM [Concomitant]
  7. EFFEXOR [Concomitant]
  8. NEURONTIN [Concomitant]

REACTIONS (4)
  - ALOPECIA [None]
  - DEHYDRATION [None]
  - PAIN [None]
  - VOMITING [None]
